FAERS Safety Report 21966390 (Version 1)
Quarter: 2023Q1

REPORT INFORMATION
  Report Type: Spontaneous
  Country: US (occurrence: US)
  Receive Date: 20230208
  Receipt Date: 20230208
  Transmission Date: 20230418
  Serious: Yes (Hospitalization)
  Sender: FDA-Public Use
  Company Number: US-ENDO PHARMACEUTICALS INC-2023-000448

PATIENT
  Age: 15 Year
  Sex: Male

DRUGS (2)
  1. IBUPROFEN [Suspect]
     Active Substance: IBUPROFEN
     Indication: Product used for unknown indication
     Dosage: 120 G, UNKNOWN (TOOK 300 IBUPROFEN 400 MG TABLETS (120G OR 1,666 MG/KG)
     Route: 048
  2. BENADRYL [Suspect]
     Active Substance: DIPHENHYDRAMINE HYDROCHLORIDE
     Indication: Product used for unknown indication
     Dosage: 14 DF, UNKNOWN (14 TABLETS OF BENADRYL 25MG)
     Route: 048

REACTIONS (4)
  - Acute respiratory distress syndrome [Recovering/Resolving]
  - Cardiac arrest [Recovering/Resolving]
  - Renal failure [Recovering/Resolving]
  - Overdose [Unknown]
